FAERS Safety Report 5903555-0 (Version None)
Quarter: 2008Q3

REPORT INFORMATION
  Report Type: 
  Country: None (occurrence: None)
  Receive Date: 20080930
  Receipt Date: 20080918
  Transmission Date: 20090109
  Serious: Yes (Death)
  Sender: FDA-Public Use
  Company Number: JP-PFIZER INC-2008079435

PATIENT
  Weight: 49 kg

DRUGS (10)
  1. REVATIO [Suspect]
     Indication: PULMONARY ARTERIAL HYPERTENSION
     Route: 048
     Dates: start: 20080428, end: 20080516
  2. TRACLEER [Concomitant]
     Route: 048
     Dates: start: 20051011
  3. PREDNISOLONE [Concomitant]
     Route: 048
     Dates: end: 20080516
  4. PREDONINE [Concomitant]
     Route: 042
     Dates: start: 20080517
  5. DICHLOTRIDE [Concomitant]
     Route: 048
     Dates: end: 20080516
  6. ALDACTONE [Concomitant]
     Route: 048
     Dates: end: 20080516
  7. LASIX [Concomitant]
     Route: 048
     Dates: end: 20080516
  8. ALENDRONATE SODIUM [Concomitant]
     Route: 048
     Dates: end: 20080516
  9. CLEANAL [Concomitant]
     Route: 048
     Dates: end: 20080516
  10. DIGOXIN [Concomitant]
     Route: 048
     Dates: end: 20080516

REACTIONS (1)
  - DEATH [None]
